FAERS Safety Report 7967543-5 (Version None)
Quarter: 2011Q4

REPORT INFORMATION
  Report Type: 
  Country: None (occurrence: None)
  Receive Date: 20111207
  Receipt Date: 20111122
  Transmission Date: 20120403
  Serious: Yes (Other)
  Sender: FDA-Public Use
  Company Number: NM-AE-11-004

PATIENT
  Sex: Male
  Weight: 117.9352 kg

DRUGS (11)
  1. ALBUTEROL [Concomitant]
  2. WARFARIN SODIUM [Concomitant]
  3. COREG [Suspect]
     Indication: CARDIAC FAILURE CONGESTIVE
     Dates: end: 20111101
  4. NORVASC [Suspect]
     Indication: BLOOD PRESSURE
     Dosage: 10 MG, QD
     Dates: start: 20111101
  5. BIDIL [Suspect]
     Indication: CARDIAC FAILURE CONGESTIVE
     Dosage: 1 TABLET, TID
     Dates: start: 20110101
  6. METOPROLOL TARTRATE [Concomitant]
  7. SPIRONOLACTONE [Concomitant]
  8. FLUTICASONE PROPIONATE [Concomitant]
  9. COLCRYS [Concomitant]
  10. FAMOTIDINE [Concomitant]
  11. ADVAIR DISKUS 100/50 [Concomitant]

REACTIONS (14)
  - MIDDLE INSOMNIA [None]
  - TREMOR [None]
  - HEADACHE [None]
  - DRUG DOSE OMISSION [None]
  - SINUS CONGESTION [None]
  - BLOOD PRESSURE INCREASED [None]
  - DIZZINESS [None]
  - TINNITUS [None]
  - GOUT [None]
  - BLOOD CHOLESTEROL INCREASED [None]
  - MEMORY IMPAIRMENT [None]
  - VERTIGO [None]
  - MORBID THOUGHTS [None]
  - NERVOUSNESS [None]
